APPROVED DRUG PRODUCT: QMIIZ ODT
Active Ingredient: MELOXICAM
Strength: 15MG **Federal Register determination that product was not discontinued or withdrawn for safety or effectiveness reasons**
Dosage Form/Route: TABLET, ORALLY DISINTEGRATING;ORAL
Application: N211210 | Product #002
Applicant: TERSERA THERAPEUTICS LLC
Approved: Oct 19, 2018 | RLD: Yes | RS: No | Type: DISCN

PATENTS:
Patent 8545879 | Expires: Aug 31, 2030